FAERS Safety Report 10180226 (Version 1)
Quarter: 2014Q2

REPORT INFORMATION
  Report Type: Spontaneous
  Country: US (occurrence: US)
  Receive Date: 20140519
  Receipt Date: 20140519
  Transmission Date: 20141212
  Serious: No
  Sender: FDA-Public Use
  Company Number: US-AMGEN INC.-USASP2013087801

PATIENT
  Age: 67 Year
  Sex: Male

DRUGS (5)
  1. PROLIA [Suspect]
     Indication: OSTEOPOROSIS POSTMENOPAUSAL
     Dosage: UNK
     Route: 065
     Dates: start: 20131105
  2. ALLEGRA [Concomitant]
     Dosage: 180 MG, QD
     Route: 065
  3. CALCIUM + VITAMIN D                /01483701/ [Concomitant]
     Dosage: UNK
     Route: 065
  4. VITAMIN D                          /00107901/ [Concomitant]
     Dosage: 50000 IU, QWK
     Route: 048
  5. LIPITOR [Concomitant]
     Dosage: UNK
     Route: 065

REACTIONS (2)
  - Fatigue [Unknown]
  - Pruritus generalised [Unknown]
